FAERS Safety Report 5338356-8 (Version None)
Quarter: 2007Q2

REPORT INFORMATION
  Report Type: 
  Country: None (occurrence: None)
  Receive Date: 20070405
  Receipt Date: 20061116
  Transmission Date: 20071010
  Serious: No
  Sender: FDA-Public Use
  Company Number: US200611003150

PATIENT
  Age: 42 Year
  Sex: Male

DRUGS (3)
  1. CYMBALTA [Suspect]
     Indication: DEPRESSION
     Dosage: 20 MG, 2/D, ORAL
     Route: 048
     Dates: start: 20060101
  2. SEROQUEL [Concomitant]
  3. KLONOPIN [Concomitant]

REACTIONS (1)
  - THINKING ABNORMAL [None]
